FAERS Safety Report 20085238 (Version 2)
Quarter: 2021Q4

REPORT INFORMATION
  Report Type: Spontaneous
  Country: US (occurrence: None)
  Receive Date: 20211118
  Receipt Date: 20211119
  Transmission Date: 20220303
  Serious: Yes (Hospitalization)
  Sender: FDA-Public Use
  Company Number: US-ROCHE-2951676

PATIENT
  Sex: Male
  Weight: 108.05 kg

DRUGS (20)
  1. ESBRIET [Suspect]
     Active Substance: PIRFENIDONE
     Indication: Product used for unknown indication
     Route: 065
  2. ACETAMINOPHEN\HYDROCODONE [Concomitant]
     Active Substance: ACETAMINOPHEN\HYDROCODONE
     Dosage: 5-325 MG
     Route: 048
  3. POTASSIUM CHLORIDE [Concomitant]
     Active Substance: POTASSIUM CHLORIDE
     Dosage: 10 MEQ EXTENDED RELEASE TABLET WITH FOOD
     Route: 048
  4. FUROSEMIDE [Concomitant]
     Active Substance: FUROSEMIDE
     Route: 048
  5. LISINOPRIL [Concomitant]
     Active Substance: LISINOPRIL
     Route: 048
  6. NIACIN [Concomitant]
     Active Substance: NIACIN
     Dosage: WITH FOOD
     Route: 048
  7. SIMVASTATIN [Concomitant]
     Active Substance: SIMVASTATIN
     Dosage: 1 TABLET IN EVENING
     Route: 048
  8. WARFARIN SODIUM [Concomitant]
     Active Substance: WARFARIN SODIUM
     Route: 048
  9. IBUPROFEN [Concomitant]
     Active Substance: IBUPROFEN
     Dosage: 1 TABLET WITH FOOD OR MILK AS NEEDED
     Route: 048
  10. METFORMIN HYDROCHLORIDE [Concomitant]
     Active Substance: METFORMIN HYDROCHLORIDE
     Dosage: ER 24 HOURS 1 TABLET IN EVENING WITH MEAL
     Route: 048
  11. ESBRIET [Concomitant]
     Active Substance: PIRFENIDONE
     Route: 048
  12. MUCINEX [Concomitant]
     Active Substance: GUAIFENESIN
     Dosage: ER
     Route: 048
  13. ALBUTEROL SULFATE [Concomitant]
     Active Substance: ALBUTEROL SULFATE
     Dosage: 2.5 MG/3 ML, 0.083% NEBULIZATION SOLUTION 3 ML AS NEEDED EVERY 4 HOURS
  14. PREDNISONE [Concomitant]
     Active Substance: PREDNISONE
     Route: 048
  15. TRELEGY ELLIPTA [Concomitant]
     Active Substance: FLUTICASONE FUROATE\UMECLIDINIUM BROMIDE\VILANTEROL TRIFENATATE
     Dosage: 100-62.5-25 MCG/INH AEROSOL POWDER BREATH ACTIVATED 1 PUFF OD
  16. PANTOPRAZOLE SODIUM [Concomitant]
     Active Substance: PANTOPRAZOLE SODIUM
     Dosage: DR
     Route: 048
  17. DOXYCYCLINE HYCLATE [Concomitant]
     Active Substance: DOXYCYCLINE HYCLATE
     Route: 048
  18. ZITHROMAX [Concomitant]
     Active Substance: AZITHROMYCIN DIHYDRATE
     Route: 048
  19. OFEV [Concomitant]
     Active Substance: NINTEDANIB
     Route: 048
  20. FLUTICASONE PROPIONATE [Concomitant]
     Active Substance: FLUTICASONE PROPIONATE
     Dosage: 50 MCG/ACT SUSPENSION 1 SPRAY IN EACH NOSTRIL NASALLY

REACTIONS (3)
  - Peripheral swelling [Unknown]
  - Decreased appetite [Unknown]
  - Erythema [Unknown]
